FAERS Safety Report 7603376-7 (Version None)
Quarter: 2011Q3

REPORT INFORMATION
  Report Type: 
  Country: None (occurrence: None)
  Receive Date: 20110712
  Receipt Date: 20110707
  Transmission Date: 20111222
  Serious: Yes (Death)
  Sender: FDA-Public Use
  Company Number: PHHY2011AU56259

PATIENT
  Age: 46 Year

DRUGS (4)
  1. MIRTAZAPINE [Suspect]
     Dosage: UNK
  2. METHADONE HCL [Suspect]
     Dosage: UNK
  3. VENLAFAXINE [Suspect]
     Dosage: UNK
  4. CLOZAPINE [Suspect]
     Dosage: UNK

REACTIONS (5)
  - TOXICITY TO VARIOUS AGENTS [None]
  - ACCIDENTAL OVERDOSE [None]
  - RESPIRATORY DEPRESSION [None]
  - FOREIGN BODY [None]
  - ACCIDENTAL POISONING [None]
